FAERS Safety Report 7960008-6 (Version None)
Quarter: 2011Q4

REPORT INFORMATION
  Report Type: 
  Country: None (occurrence: None)
  Receive Date: 20111201
  Receipt Date: 20111115
  Transmission Date: 20120403
  Serious: Yes (Death)
  Sender: FDA-Public Use
  Company Number: 2009-023

PATIENT
  Age: 77 Year
  Sex: Male

DRUGS (1)
  1. FAZACLO ODT [Suspect]
     Dosage: 25 MG, QD, ORAL
     Route: 048
     Dates: start: 20071203, end: 20081218

REACTIONS (1)
  - RENAL FAILURE CHRONIC [None]
